FAERS Safety Report 9179617 (Version 1)
Quarter: 2012Q4

REPORT INFORMATION
  Report Type: 
  Country: US (occurrence: US)
  Receive Date: 20121029
  Receipt Date: 20121029
  Transmission Date: 20130627
  Serious: Yes (Hospitalization)
  Sender: FDA-Public Use
  Company Number: US-GLAXOSMITHKLINE-A0998859A

PATIENT
  Age: 16 Year
  Sex: Male

DRUGS (1)
  1. FLOLAN [Suspect]
     Dosage: 50NGKM Continuous
     Route: 050
     Dates: start: 20010524

REACTIONS (1)
  - Heart valve replacement [Unknown]
